FAERS Safety Report 5836371-9 (Version None)
Quarter: 2008Q3

REPORT INFORMATION
  Report Type: 
  Country: None (occurrence: None)
  Receive Date: 20080806
  Receipt Date: 20080806
  Transmission Date: 20090109
  Serious: No
  Sender: FDA-Public Use
  Company Number: None

PATIENT
  Age: 3 Year
  Sex: Male
  Weight: 14.0615 kg

DRUGS (1)
  1. SINGULAIR [Suspect]
     Dosage: 4MG 1 TIME AT NIGHT PO
     Route: 048

REACTIONS (5)
  - ABNORMAL BEHAVIOUR [None]
  - CRYING [None]
  - DEPRESSED MOOD [None]
  - DRUG EFFECT DECREASED [None]
  - TEARFULNESS [None]
